FAERS Safety Report 23697741 (Version 1)
Quarter: 2024Q2

REPORT INFORMATION
  Report Type: Spontaneous
  Country: CN (occurrence: CN)
  Receive Date: 20240402
  Receipt Date: 20240402
  Transmission Date: 20240716
  Serious: Yes (Other)
  Sender: FDA-Public Use
  Company Number: CN-MYLANLABS-2024M1028758

PATIENT
  Age: 77 Year
  Sex: Male
  Weight: 55 kg

DRUGS (5)
  1. LYRICA [Suspect]
     Active Substance: PREGABALIN
     Indication: Herpes zoster
     Dosage: 75 MILLIGRAM, BID
     Route: 048
     Dates: start: 20240318, end: 20240319
  2. LYRICA [Suspect]
     Active Substance: PREGABALIN
     Dosage: 150 MILLIGRAM, BID
     Route: 048
     Dates: start: 20240320, end: 20240321
  3. LYRICA [Suspect]
     Active Substance: PREGABALIN
     Dosage: 75 MILLIGRAM, BID
     Route: 048
     Dates: start: 20240322, end: 20240323
  4. METHYLCOBALAMIN [Concomitant]
     Active Substance: METHYLCOBALAMIN
     Indication: Autonomic nervous system imbalance
     Dosage: 0.5 MILLIGRAM, TID
     Route: 048
     Dates: start: 20240318, end: 20240327
  5. DULOXETINE HYDROCHLORIDE [Concomitant]
     Active Substance: DULOXETINE HYDROCHLORIDE
     Indication: Musculoskeletal disorder
     Dosage: 30 MILLIGRAM, BID
     Route: 048
     Dates: start: 20240321, end: 20240327

REACTIONS (1)
  - Sleep talking [Recovering/Resolving]

NARRATIVE: CASE EVENT DATE: 20240320
